FAERS Safety Report 8119608-5 (Version None)
Quarter: 2012Q1

REPORT INFORMATION
  Report Type: 
  Country: None (occurrence: None)
  Receive Date: 20120207
  Receipt Date: 20120201
  Transmission Date: 20120608
  Serious: Yes (Hospitalization, Other)
  Sender: FDA-Public Use
  Company Number: PHHO2011US14634

PATIENT
  Age: 64 Year
  Sex: Female

DRUGS (5)
  1. SORAFENIB [Suspect]
     Indication: THYROID CANCER
     Dosage: 400 MG IN THE MORNING AND 400 MG IN THE EVENING
     Route: 048
     Dates: start: 20110623
  2. SORAFENIB [Suspect]
     Dosage: 400 MG IN THE MORNING AND 200 MG IN THE EVENING
     Route: 048
     Dates: start: 20110808, end: 20111206
  3. AFINITOR [Suspect]
     Indication: THYROID CANCER
     Dosage: 5 MG, QD
     Route: 048
     Dates: start: 20110623, end: 20111206
  4. SORAFENIB [Suspect]
     Dosage: 400 MG IN THE MORNING AND 200 MG IN THE EVENING
     Route: 048
  5. SORAFENIB [Suspect]
     Dosage: NO TREATMENT
     Dates: start: 20110804, end: 20110807

REACTIONS (10)
  - HYPOTENSION [None]
  - HYPOPHOSPHATAEMIA [None]
  - HYPERGLYCAEMIA [None]
  - SKIN INFECTION [None]
  - ANAEMIA [None]
  - LYMPHOCYTE COUNT DECREASED [None]
  - HYPOCALCAEMIA [None]
  - PERIPHERAL MOTOR NEUROPATHY [None]
  - CEREBROVASCULAR ACCIDENT [None]
  - DIARRHOEA [None]
